FAERS Safety Report 6896577-7 (Version None)
Quarter: 2010Q3

REPORT INFORMATION
  Report Type: 
  Country: None (occurrence: None)
  Receive Date: 20100729
  Receipt Date: 20100716
  Transmission Date: 20110219
  Serious: Yes (Hospitalization, Disabling)
  Sender: FDA-Public Use
  Company Number: JP-001226

PATIENT
  Sex: Female

DRUGS (8)
  1. SAPROPTERIN HYDROCHLORIDE (BIOPTEN) [Suspect]
     Indication: PHENYLKETONURIA
     Dosage: 1.05 MG/KG ORAL, 1.3 MG/KG ORAL
     Route: 048
     Dates: start: 20090401, end: 20090403
  2. SAPROPTERIN HYDROCHLORIDE (BIOPTEN) [Suspect]
     Indication: PHENYLKETONURIA
     Dosage: 1.05 MG/KG ORAL, 1.3 MG/KG ORAL
     Route: 048
     Dates: start: 20090404
  3. KUVAN [Suspect]
  4. DOPARL [Concomitant]
  5. SELEGILINE HYDROCHLORIDE [Concomitant]
  6. ARTANE [Concomitant]
  7. TOCOPHERYL ACETATE [Concomitant]
  8. DORNER [Concomitant]

REACTIONS (3)
  - DECREASED APPETITE [None]
  - DEHYDRATION [None]
  - ORTHOSTATIC HYPOTENSION [None]
